FAERS Safety Report 8462472-5 (Version None)
Quarter: 2012Q2

REPORT INFORMATION
  Report Type: 
  Country: None (occurrence: None)
  Receive Date: 20120625
  Receipt Date: 20120611
  Transmission Date: 20120825
  Serious: Yes (Other)
  Sender: FDA-Public Use
  Company Number: JP-ELI_LILLY_AND_COMPANY-JP201206002893

PATIENT
  Sex: Female

DRUGS (4)
  1. EVISTA [Suspect]
     Indication: OSTEOPOROSIS
     Route: 048
  2. KEISHIBUKURYOGAN [Concomitant]
  3. NEUROTROPIN [Concomitant]
     Route: 048
  4. GOREI-SAN [Concomitant]
     Route: 048

REACTIONS (1)
  - THROMBOCYTOPENIA [None]
